FAERS Safety Report 23514460 (Version 6)
Quarter: 2024Q3

REPORT INFORMATION
  Report Type: Report from Study
  Country: CA (occurrence: CA)
  Receive Date: 20240212
  Receipt Date: 20240828
  Transmission Date: 20241016
  Serious: Yes (Hospitalization, Other)
  Sender: HLS THERAPEUTICS
  Company Number: CA-HLS-202400467

PATIENT
  Age: 66 Year
  Sex: Female

DRUGS (9)
  1. CLOZARIL [Suspect]
     Active Substance: CLOZAPINE
     Indication: Schizophrenia
     Route: 048
     Dates: end: 20240822
  2. CLOZARIL [Suspect]
     Active Substance: CLOZAPINE
     Indication: Dementia
     Route: 048
     Dates: end: 20240822
  3. CLOZARIL [Suspect]
     Active Substance: CLOZAPINE
     Indication: Schizophrenia
     Route: 048
     Dates: start: 20201223, end: 20240131
  4. CLOZARIL [Suspect]
     Active Substance: CLOZAPINE
     Indication: Dementia
     Route: 048
     Dates: start: 20201223, end: 20240131
  5. CLOZARIL [Suspect]
     Active Substance: CLOZAPINE
     Indication: Schizophrenia
     Dosage: RESTART ON FEB 7TH / 400 MG BEDTIME
     Route: 048
     Dates: start: 20240207
  6. CLOZARIL [Suspect]
     Active Substance: CLOZAPINE
     Indication: Dementia
     Dosage: RESTART ON FEB 7TH / 400 MG BEDTIME
     Route: 048
     Dates: start: 20240207
  7. FOLIC ACID [Concomitant]
     Active Substance: FOLIC ACID
     Indication: Product used for unknown indication
     Dosage: 5 MG EVERY MORNING
     Route: 065
  8. VALPROATE [Concomitant]
     Active Substance: VALPROIC ACID
     Indication: Product used for unknown indication
     Dosage: 250 MG IN THE MORNING AND 750 MG BEDTIME
     Route: 065
  9. LORAZEPAM [Concomitant]
     Active Substance: LORAZEPAM
     Route: 065

REACTIONS (7)
  - Product dose omission issue [Not Recovered/Not Resolved]
  - Therapy interrupted [Recovered/Resolved]
  - COVID-19 [Unknown]
  - Asthenia [Unknown]
  - Neutrophil count decreased [Unknown]
  - Off label use [Unknown]
  - Treatment noncompliance [Unknown]

NARRATIVE: CASE EVENT DATE: 20240301
